FAERS Safety Report 22247699 (Version 8)
Quarter: 2024Q3

REPORT INFORMATION
  Report Type: Report from Study
  Country: US (occurrence: US)
  Receive Date: 20230425
  Receipt Date: 20240922
  Transmission Date: 20241017
  Serious: Yes (Other)
  Sender: ABBVIE
  Company Number: US-ABBVIE-4737825

PATIENT
  Age: 61 Year
  Sex: Female

DRUGS (8)
  1. RINVOQ [Suspect]
     Active Substance: UPADACITINIB
     Indication: Rheumatoid arthritis
     Route: 048
     Dates: start: 20010127
  2. RINVOQ [Suspect]
     Active Substance: UPADACITINIB
     Indication: Rheumatoid arthritis
     Dosage: LAST ADMIN DATE 2021
     Route: 048
     Dates: start: 20210127
  3. RINVOQ [Suspect]
     Active Substance: UPADACITINIB
     Indication: Rheumatoid arthritis
     Route: 048
     Dates: start: 20201021
  4. RINVOQ [Suspect]
     Active Substance: UPADACITINIB
     Indication: Rheumatoid arthritis
     Route: 048
  5. RINVOQ [Suspect]
     Active Substance: UPADACITINIB
     Indication: Rheumatoid arthritis
     Route: 048
  6. RINVOQ [Suspect]
     Active Substance: UPADACITINIB
     Indication: Rheumatoid arthritis
     Route: 048
     Dates: start: 20210128
  7. ATORVASTATIN CALCIUM [Suspect]
     Active Substance: ATORVASTATIN CALCIUM
     Indication: Product used for unknown indication
     Route: 065
  8. IBUPROFEN [Suspect]
     Active Substance: IBUPROFEN
     Indication: Product used for unknown indication
     Route: 065

REACTIONS (20)
  - Stomatitis [Recovering/Resolving]
  - Pain in extremity [Recovering/Resolving]
  - Alopecia [Unknown]
  - Feeling abnormal [Unknown]
  - Tendonitis [Recovering/Resolving]
  - Tendonitis [Unknown]
  - Intervertebral disc disorder [Unknown]
  - Gait inability [Not Recovered/Not Resolved]
  - Procedural pain [Recovering/Resolving]
  - Vitamin D increased [Unknown]
  - Flatulence [Recovering/Resolving]
  - Somnolence [Unknown]
  - Pain [Recovering/Resolving]
  - Candida infection [Not Recovered/Not Resolved]
  - Acne [Unknown]
  - Hiatus hernia [Unknown]
  - Mass [Unknown]
  - Foot operation [Unknown]
  - Nervous system disorder [Unknown]
  - Ulcer [Unknown]

NARRATIVE: CASE EVENT DATE: 20220801
